FAERS Safety Report 17187322 (Version 1)
Quarter: 2019Q4

REPORT INFORMATION
  Report Type: Spontaneous
  Country: US (occurrence: US)
  Receive Date: 20191220
  Receipt Date: 20191220
  Transmission Date: 20200122
  Serious: No
  Sender: FDA-Public Use
  Company Number: US-BAXTER-2019BAX025630

PATIENT
  Age: 93 Year
  Sex: Female

DRUGS (2)
  1. DIANEAL LOW CALCIUM PERITONEAL DIALYSIS SOLUTION WITH DEXTROSE [Suspect]
     Active Substance: CALCIUM CHLORIDE\DEXTROSE\MAGNESIUM CHLORIDE\SODIUM CHLORIDE\SODIUM LACTATE
     Indication: PERITONEAL DIALYSIS
     Dosage: VIA CYCLER.
     Route: 033
     Dates: start: 20190901, end: 20191201
  2. DIANEAL LOW CALCIUM PERITONEAL DIALYSIS SOLUTION WITH DEXTROSE [Suspect]
     Active Substance: CALCIUM CHLORIDE\DEXTROSE\MAGNESIUM CHLORIDE\SODIUM CHLORIDE\SODIUM LACTATE
     Indication: PERITONEAL DIALYSIS
     Dosage: MANUAL EXCHANGES.
     Route: 033
     Dates: start: 20191201

REACTIONS (4)
  - Fluid overload [Unknown]
  - Peritoneal dialysis complication [Unknown]
  - Ultrafiltration failure [Unknown]
  - Malaise [Unknown]

NARRATIVE: CASE EVENT DATE: 201911
